FAERS Safety Report 21499641 (Version 5)
Quarter: 2022Q4

REPORT INFORMATION
  Report Type: Report from Study
  Country: CN (occurrence: CN)
  Receive Date: 20221024
  Receipt Date: 20221228
  Transmission Date: 20230112
  Serious: Yes (Hospitalization)
  Sender: FDA-Public Use
  Company Number: CN-KARYOPHARM-2022KPT001247

PATIENT
  Age: 70 Year
  Sex: Female
  Weight: 59 kg

DRUGS (20)
  1. SELINEXOR [Suspect]
     Active Substance: SELINEXOR
     Indication: Diffuse large B-cell lymphoma
     Dosage: 40 MG, ON DAYS 1 AND 8 OF A 21-DAY CYCLE
     Route: 048
     Dates: start: 20220608, end: 20220927
  2. SELINEXOR [Suspect]
     Active Substance: SELINEXOR
     Dosage: 20 MG, WEEKLY DAY 1 AND 8 / 3 WEEKS
     Route: 048
     Dates: start: 20220927, end: 20220927
  3. RITUXIMAB [Suspect]
     Active Substance: RITUXIMAB
     Indication: Diffuse large B-cell lymphoma
     Dosage: 375 MG/M2, ON DAY 1 OF A 21-DAY CYCLE
     Route: 042
     Dates: start: 20220608, end: 20220927
  4. GEMCITABINE [Suspect]
     Active Substance: GEMCITABINE
     Indication: Diffuse large B-cell lymphoma
     Dosage: 1000 MG/M2, ON DAY 1 AND 8 OF A 21-DAY CYCLE
     Route: 042
     Dates: start: 20220608, end: 20221004
  5. DEXAMETHASONE [Suspect]
     Active Substance: DEXAMETHASONE
     Indication: Diffuse large B-cell lymphoma
     Dosage: 20 MG, DAYS 1, 2, 3, AND 4 OF A 21-DAY CYCLE
     Route: 048
     Dates: start: 20220608
  6. DEXAMETHASONE [Suspect]
     Active Substance: DEXAMETHASONE
     Dosage: 20 MG, DAY 1 AND 2 OF A 21-DAY CYCLE
     Route: 048
     Dates: start: 20220723, end: 20220930
  7. DEXAMETHASONE [Suspect]
     Active Substance: DEXAMETHASONE
     Dosage: 40 MG, DAY 3 AND 4 OF A 21-DAY CYCLE
     Route: 048
     Dates: start: 20220723, end: 20220930
  8. CISPLATIN [Suspect]
     Active Substance: CISPLATIN
     Indication: Diffuse large B-cell lymphoma
     Dosage: 56 MG/M2, ON DAY 1 OF A 21-DAY CYCLE
     Route: 042
     Dates: start: 20220608
  9. CISPLATIN [Suspect]
     Active Substance: CISPLATIN
     Dosage: 27.8 MG/M2, ON DAY 1 OF A 21-DAY CYCLE
     Route: 042
     Dates: start: 20220723, end: 20220927
  10. CARBOPLATIN [Suspect]
     Active Substance: CARBOPLATIN
     Indication: Diffuse large B-cell lymphoma
     Dosage: 310 MG
     Route: 042
     Dates: start: 20220629, end: 20220723
  11. NETUPITANT\PALONOSETRON HYDROCHLORIDE [Concomitant]
     Active Substance: NETUPITANT\PALONOSETRON HYDROCHLORIDE
     Indication: Prophylaxis of nausea and vomiting
     Dosage: 1 CAPSULE, QD
     Route: 048
     Dates: start: 20220914, end: 20220914
  12. NETUPITANT\PALONOSETRON HYDROCHLORIDE [Concomitant]
     Active Substance: NETUPITANT\PALONOSETRON HYDROCHLORIDE
     Dosage: 1 CAPSULE, QD
     Route: 048
     Dates: start: 20220927, end: 20220927
  13. NETUPITANT\PALONOSETRON HYDROCHLORIDE [Concomitant]
     Active Substance: NETUPITANT\PALONOSETRON HYDROCHLORIDE
     Dosage: 1 CAPSULE, QD
     Dates: start: 20221004, end: 20221004
  14. MECAPEGFILGRASTIM [Concomitant]
     Active Substance: MECAPEGFILGRASTIM
     Indication: Prophylaxis
     Dosage: 6 MG
     Route: 058
     Dates: start: 20220617, end: 20221005
  15. ENTECAVIR [Concomitant]
     Active Substance: ENTECAVIR
     Dosage: 0.5 MG, QD
     Route: 048
     Dates: start: 20220810
  16. MOSAPRIDE CITRATE [Concomitant]
     Active Substance: MOSAPRIDE CITRATE
     Indication: Dyspepsia
     Dosage: 0.5 MG, TID
     Route: 048
     Dates: start: 20220810
  17. ERYTHROPOIETIN [Concomitant]
     Active Substance: ERYTHROPOIETIN
     Indication: Anaemia
     Dosage: 10000 IU, SINGLE
     Route: 058
     Dates: start: 20220927, end: 20220927
  18. ERYTHROPOIETIN [Concomitant]
     Active Substance: ERYTHROPOIETIN
     Dosage: 10000 IU, SINGLE
     Route: 058
     Dates: start: 20221004, end: 20221004
  19. OMEPRAZOLE [Concomitant]
     Active Substance: OMEPRAZOLE
     Indication: Prophylaxis
     Dosage: 20 MG, PRN
     Route: 048
     Dates: start: 20220608
  20. ELTROMBOPAG OLAMINE [Concomitant]
     Active Substance: ELTROMBOPAG OLAMINE
     Indication: Platelet count decreased
     Dosage: 2.5 MG, BID
     Route: 048
     Dates: start: 20220805

REACTIONS (1)
  - Myelosuppression [Recovered/Resolved]

NARRATIVE: CASE EVENT DATE: 20221013
